FAERS Safety Report 20185674 (Version 1)
Quarter: 2021Q4

REPORT INFORMATION
  Report Type: Spontaneous
  Country: US (occurrence: US)
  Receive Date: 20211215
  Receipt Date: 20211215
  Transmission Date: 20220304
  Serious: No
  Sender: FDA-Public Use
  Company Number: None

PATIENT
  Age: 65 Year
  Sex: Female

DRUGS (4)
  1. QUETIAPINE FUMARATE [Suspect]
     Active Substance: QUETIAPINE FUMARATE
     Indication: Bipolar I disorder
     Dosage: UNK
     Route: 065
     Dates: start: 202005, end: 202006
  2. QUETIAPINE FUMARATE [Suspect]
     Active Substance: QUETIAPINE FUMARATE
     Dosage: 300 MILLIGRAM, OD
     Route: 065
     Dates: start: 202006
  3. ARIPIPRAZOLE [Suspect]
     Active Substance: ARIPIPRAZOLE
     Indication: Bipolar I disorder
     Dosage: 10 MILLIGRAM, QD
     Route: 065
  4. CLONAZEPAM [Suspect]
     Active Substance: CLONAZEPAM
     Indication: Bipolar I disorder
     Dosage: 0.25 MILLIGRAM, QD
     Route: 065

REACTIONS (2)
  - Burning mouth syndrome [Recovered/Resolved]
  - Muscle tightness [Unknown]

NARRATIVE: CASE EVENT DATE: 20200501
